FAERS Safety Report 7740311-5 (Version None)
Quarter: 2011Q3

REPORT INFORMATION
  Report Type: 
  Country: None (occurrence: None)
  Receive Date: 20110909
  Receipt Date: 20110831
  Transmission Date: 20111222
  Serious: Yes (Other)
  Sender: FDA-Public Use
  Company Number: FR-JNJFOC-20110901159

PATIENT
  Sex: Male

DRUGS (3)
  1. RISPERDAL [Suspect]
     Dosage: 0.2 TO 0.5 MG
     Route: 048
     Dates: start: 20110101, end: 20110401
  2. RISPERDAL [Suspect]
     Dosage: 0.2 TO 0.5 MG
     Route: 048
     Dates: start: 20100501, end: 20100901
  3. RISPERDAL [Suspect]
     Indication: ABNORMAL BEHAVIOUR
     Dosage: 0.5 MG TO 1 MG
     Route: 048
     Dates: start: 20090101, end: 20100501

REACTIONS (1)
  - DERMATITIS ACNEIFORM [None]
